FAERS Safety Report 23694453 (Version 1)
Quarter: 2024Q2

REPORT INFORMATION
  Report Type: Spontaneous
  Country: US (occurrence: US)
  Receive Date: 20240401
  Receipt Date: 20240401
  Transmission Date: 20240715
  Serious: No
  Sender: FDA-Public Use
  Company Number: US-BIOGEN-2024BI01245155

PATIENT
  Age: 67 Year
  Sex: Female

DRUGS (2)
  1. SKYCLARYS [Suspect]
     Active Substance: OMAVELOXOLONE
     Indication: Friedreich^s ataxia
     Route: 050
     Dates: start: 20231208
  2. SKYCLARYS [Suspect]
     Active Substance: OMAVELOXOLONE
     Dosage: (150MG) BY MOUTH ONCE DAILY
     Route: 050
     Dates: start: 20231208

REACTIONS (5)
  - Adrenal insufficiency [Unknown]
  - Brain fog [Unknown]
  - Cold-stimulus headache [Unknown]
  - Product use issue [Recovered/Resolved]
  - Fatigue [Unknown]

NARRATIVE: CASE EVENT DATE: 20231201
